FAERS Safety Report 10576462 (Version 1)
Quarter: 2014Q4

REPORT INFORMATION
  Report Type: Spontaneous
  Country: AT (occurrence: AT)
  Receive Date: 20141111
  Receipt Date: 20141111
  Transmission Date: 20150529
  Serious: Yes (Death)
  Sender: FDA-Public Use
  Company Number: AT-TEVA-520792ISR

PATIENT
  Age: 33 Year
  Sex: Female

DRUGS (9)
  1. BEVACIZUMAB [Suspect]
     Active Substance: BEVACIZUMAB
     Indication: CHEMOTHERAPY
     Dosage: 3 WEEKS
     Route: 065
     Dates: start: 200902
  2. CARBOPLATIN. [Suspect]
     Active Substance: CARBOPLATIN
     Indication: CHEMOTHERAPY
     Dosage: 6 CYCLES
     Route: 065
     Dates: start: 200912
  3. CAPECITABINE. [Suspect]
     Active Substance: CAPECITABINE
     Indication: CHEMOTHERAPY
     Dosage: 3000 MILLIGRAM DAILY; 3 WEEKS
     Route: 065
     Dates: start: 200902
  4. CAPECITABINE. [Suspect]
     Active Substance: CAPECITABINE
     Dosage: 1000 MILLIGRAM DAILY;
     Route: 065
  5. CELECOXIB. [Suspect]
     Active Substance: CELECOXIB
     Indication: CHEMOTHERAPY
     Dosage: 400 MILLIGRAM DAILY; 3 WEEKS
     Route: 065
     Dates: start: 200902
  6. LAPATINIB [Suspect]
     Active Substance: LAPATINIB
     Indication: CHEMOTHERAPY
     Route: 065
  7. BEVACIZUMAB [Suspect]
     Active Substance: BEVACIZUMAB
     Route: 065
  8. CELECOXIB. [Suspect]
     Active Substance: CELECOXIB
     Dosage: 400 MILLIGRAM DAILY;
     Route: 065
  9. PACLITAXEL. [Suspect]
     Active Substance: PACLITAXEL
     Indication: CHEMOTHERAPY
     Dosage: 6 CYCLES
     Route: 065
     Dates: start: 200912

REACTIONS (1)
  - Metastatic malignant melanoma [Fatal]
